FAERS Safety Report 12997767 (Version 1)
Quarter: 2016Q4

REPORT INFORMATION
  Report Type: Spontaneous
  Country: KR (occurrence: KR)
  Receive Date: 20161205
  Receipt Date: 20161205
  Transmission Date: 20170207
  Serious: Yes (Hospitalization)
  Sender: FDA-Public Use
  Company Number: KR-HQ SPECIALTY-KR-2016INT000967

PATIENT
  Age: 60 Year
  Sex: Female

DRUGS (4)
  1. CAPECITABINE. [Suspect]
     Active Substance: CAPECITABINE
     Indication: GALLBLADDER CANCER RECURRENT
     Dosage: 2000 MG/M2, ON DAY 1 TO DAY 14 Q 21 DAYS
  2. CISPLATIN. [Suspect]
     Active Substance: CISPLATIN
     Indication: GALLBLADDER CANCER RECURRENT
     Dosage: 25 MG/M2, ON DAY 1, DAY 8 Q 21 DAYS
  3. GEMCITABINE [Concomitant]
     Active Substance: GEMCITABINE\GEMCITABINE HYDROCHLORIDE
     Indication: GALLBLADDER CANCER RECURRENT
     Dosage: 1 MG/M2, ON DAY 1, DAY 8 Q 21 DAYS
  4. CISPLATIN. [Suspect]
     Active Substance: CISPLATIN
     Dosage: 60 MG/M2, ON DAY 1 Q 21 DAYS

REACTIONS (15)
  - Tenderness [Unknown]
  - Hepatic infarction [Unknown]
  - Pyrexia [Recovered/Resolved]
  - Hypophagia [Recovered/Resolved]
  - Aspartate aminotransferase increased [Unknown]
  - Hypotension [Unknown]
  - Haematochezia [Unknown]
  - Pneumonia [Recovered/Resolved]
  - Cough [Recovered/Resolved]
  - Thrombocytopenia [Unknown]
  - C-reactive protein increased [Unknown]
  - Abdominal pain upper [Unknown]
  - Alanine aminotransferase increased [Unknown]
  - Metabolic acidosis [Unknown]
  - Portal vein thrombosis [Unknown]
